FAERS Safety Report 5265434-4 (Version None)
Quarter: 2007Q1

REPORT INFORMATION
  Report Type: 
  Country: None (occurrence: None)
  Receive Date: 20070314
  Receipt Date: 20070302
  Transmission Date: 20070707
  Serious: Yes (Other)
  Sender: FDA-Public Use
  Company Number: US-PFIZER INC-2006153608

PATIENT
  Sex: Female
  Weight: 76.2 kg

DRUGS (8)
  1. LYRICA [Suspect]
     Indication: HERPES ZOSTER
  2. NEURONTIN [Suspect]
     Indication: HERPES ZOSTER
  3. DIOVAN HCT [Concomitant]
  4. MONTELUKAST SODIUM [Concomitant]
  5. ADVAIR DISKUS 100/50 [Concomitant]
  6. MOMETASONE FUROATE [Concomitant]
  7. LIPITOR [Concomitant]
  8. ALL OTHER THERAPEUTIC PRODUCTS [Concomitant]

REACTIONS (16)
  - ABDOMINAL PAIN UPPER [None]
  - ABDOMINAL SYMPTOM [None]
  - ALOPECIA [None]
  - DECREASED APPETITE [None]
  - DISTURBANCE IN ATTENTION [None]
  - DIZZINESS [None]
  - DRUG INEFFECTIVE [None]
  - FATIGUE [None]
  - FEELING ABNORMAL [None]
  - HEADACHE [None]
  - HEARING IMPAIRED [None]
  - MIDDLE INSOMNIA [None]
  - PAIN [None]
  - PAIN IN EXTREMITY [None]
  - SOMNOLENCE [None]
  - WEIGHT INCREASED [None]
